FAERS Safety Report 26054844 (Version 2)
Quarter: 2025Q4

REPORT INFORMATION
  Report Type: Spontaneous
  Country: JP (occurrence: JP)
  Receive Date: 20251117
  Receipt Date: 20251204
  Transmission Date: 20260117
  Serious: Yes (Hospitalization, Other)
  Sender: INCYTE
  Company Number: JP-002147023-NVSJ2025JP010790

PATIENT
  Age: 63 Year

DRUGS (2)
  1. RUXOLITINIB [Suspect]
     Active Substance: RUXOLITINIB
     Indication: Myeloproliferative neoplasm
     Dosage: UNK
  2. RUXOLITINIB [Suspect]
     Active Substance: RUXOLITINIB
     Indication: Janus kinase 2 mutation

REACTIONS (4)
  - Transformation to acute myeloid leukaemia [Recovered/Resolved]
  - Chloroma [Recovered/Resolved]
  - Malignant neoplasm progression [Not Recovered/Not Resolved]
  - Myelofibrosis [Not Recovered/Not Resolved]
